FAERS Safety Report 4379756-2 (Version None)
Quarter: 2004Q2

REPORT INFORMATION
  Report Type: 
  Country: None (occurrence: None)
  Receive Date: 20040617
  Receipt Date: 20040609
  Transmission Date: 20050107
  Serious: Yes (Hospitalization)
  Sender: FDA-Public Use
  Company Number: IT-GLAXOSMITHKLINE-B0335706A

PATIENT
  Age: 73 Year
  Sex: Female

DRUGS (2)
  1. GLAZIDIM [Suspect]
     Indication: PNEUMONIA
     Dosage: 2G PER DAY
     Route: 065
     Dates: start: 20040511, end: 20040511
  2. UNSPECIFIED ANTIBIOTIC [Suspect]
     Dosage: 400MG PER DAY
     Route: 048
     Dates: start: 20040511, end: 20040511

REACTIONS (3)
  - DYSPNOEA [None]
  - PRURITUS [None]
  - PRURITUS GENERALISED [None]
